FAERS Safety Report 13556429 (Version 1)
Quarter: 2017Q2

REPORT INFORMATION
  Report Type: Spontaneous
  Country: US (occurrence: US)
  Receive Date: 20170517
  Receipt Date: 20170517
  Transmission Date: 20170830
  Serious: No
  Sender: FDA-Public Use
  Company Number: US-SA-2017SA040452

PATIENT
  Age: 67 Year
  Sex: Female

DRUGS (2)
  1. TOUJEO [Suspect]
     Active Substance: INSULIN GLARGINE
     Indication: DIABETES MELLITUS
     Dosage: 50 ;UNITS NOT SPECIFIED
     Route: 058
     Dates: start: 20170201, end: 20170303
  2. SOLOSTAR [Concomitant]
     Active Substance: DEVICE
     Dates: start: 20170201, end: 20170303

REACTIONS (2)
  - Injection site irritation [Recovering/Resolving]
  - Injection site urticaria [Recovering/Resolving]
